FAERS Safety Report 6827571-X (Version None)
Quarter: 2010Q3

REPORT INFORMATION
  Report Type: 
  Country: None (occurrence: None)
  Receive Date: 20100709
  Receipt Date: 20070120
  Transmission Date: 20110219
  Serious: No
  Sender: FDA-Public Use
  Company Number: US-PFIZER INC-2007006447

PATIENT
  Sex: Female
  Weight: 89.81 kg

DRUGS (14)
  1. CHANTIX [Suspect]
     Indication: EX-TOBACCO USER
     Dates: start: 20060901
  2. PAXIL [Concomitant]
  3. GLUCOPHAGE [Concomitant]
  4. ZANTAC [Concomitant]
  5. LISINOPRIL [Concomitant]
  6. VALIUM [Concomitant]
  7. ZESTRIL [Concomitant]
  8. WARFARIN [Concomitant]
  9. TRILEPTAL [Concomitant]
  10. FLOXAPEN [Concomitant]
  11. ANALGESICS [Concomitant]
     Indication: PAIN
  12. DURAGESIC-100 [Concomitant]
  13. FLEXERIL [Concomitant]
  14. OTHER HYPNOTICS AND SEDATIVES [Concomitant]
     Indication: SLEEP DISORDER

REACTIONS (1)
  - NASOPHARYNGITIS [None]
